FAERS Safety Report 5783154-4 (Version None)
Quarter: 2008Q2

REPORT INFORMATION
  Report Type: 
  Country: None (occurrence: None)
  Receive Date: 20080624
  Receipt Date: 20080619
  Transmission Date: 20081010
  Serious: Yes (Life-Threatening)
  Sender: FDA-Public Use
  Company Number: JP-ASTRAZENECA-2008AP04738

PATIENT
  Age: 36 Year
  Sex: Female
  Weight: 52 kg

DRUGS (5)
  1. 1% DIPRIVAN INJECTION [Suspect]
     Indication: INDUCTION OF ANAESTHESIA
     Route: 042
  2. 1% DIPRIVAN INJECTION [Suspect]
     Route: 042
  3. REMIFENTANIL HYDROCHLORIDE [Suspect]
     Indication: INDUCTION OF ANAESTHESIA
     Route: 042
  4. MIDAZOLAM HCL [Concomitant]
     Indication: ANAESTHETIC PREMEDICATION
     Route: 042
  5. VECURONIUM BROMIDE [Concomitant]
     Indication: INDUCTION OF ANAESTHESIA
     Route: 042

REACTIONS (1)
  - CARDIAC ARREST [None]
